FAERS Safety Report 6760043-X (Version None)
Quarter: 2010Q2

REPORT INFORMATION
  Report Type: 
  Country: None (occurrence: None)
  Receive Date: 20100604
  Receipt Date: 20100520
  Transmission Date: 20101027
  Serious: Yes (Death, Life-Threatening, Hospitalization)
  Sender: FDA-Public Use
  Company Number: AUR-APL-2010-01358

PATIENT
  Age: 87 Year
  Sex: Female

DRUGS (11)
  1. SIMVASTATIN [Suspect]
     Indication: HYPERCHOLESTEROLAEMIA
     Dosage: 40 MG, DAILY, ORAL
     Route: 048
     Dates: start: 20100114, end: 20100319
  2. NORFLOXACIN [Suspect]
     Dosage: 2DF, BID
  3. ASPIRIN [Concomitant]
  4. BISOPROLOL [Concomitant]
  5. CITALOPRAM HYDROBROMIDE [Concomitant]
  6. ACETAMINOPHEN AND CODEINE PHOSPHATE [Concomitant]
  7. FRUSEMIDE [Concomitant]
  8. GLYCERYL TRINITRATE [Concomitant]
  9. ISOSORBIDE [Concomitant]
  10. MADOPAR [Concomitant]
  11. PERINDOPRIL [Concomitant]

REACTIONS (5)
  - CARDIAC FAILURE [None]
  - MOBILITY DECREASED [None]
  - PNEUMONIA [None]
  - RENAL FAILURE ACUTE [None]
  - RHABDOMYOLYSIS [None]
